FAERS Safety Report 9395048 (Version 1)
Quarter: 2013Q3

REPORT INFORMATION
  Report Type: Spontaneous
  Country: TW (occurrence: TW)
  Receive Date: 20130711
  Receipt Date: 20130711
  Transmission Date: 20140515
  Serious: Yes (Other)
  Sender: FDA-Public Use
  Company Number: TW-PFIZER INC-2013201548

PATIENT
  Sex: Female

DRUGS (1)
  1. CELEBREX [Suspect]
     Dosage: UNK
     Route: 048
     Dates: start: 201307, end: 201307

REACTIONS (3)
  - Conjunctivitis [Unknown]
  - Vision blurred [Unknown]
  - Visual acuity reduced [Recovering/Resolving]
